FAERS Safety Report 17065459 (Version 1)
Quarter: 2019Q4

REPORT INFORMATION
  Report Type: Spontaneous
  Country: US (occurrence: US)
  Receive Date: 20191122
  Receipt Date: 20191122
  Transmission Date: 20200122
  Serious: Yes (Life-Threatening, Other)
  Sender: FDA-Public Use
  Company Number: None

PATIENT
  Age: 76 Year
  Sex: Male
  Weight: 110.25 kg

DRUGS (6)
  1. VALSARTAN TABLETS, USP [Suspect]
     Active Substance: VALSARTAN
     Indication: HYPERTENSION
     Route: 048
  2. OXYMORPHONE 10 MG ER [Concomitant]
     Dates: start: 20090831
  3. CHLORTHALIDONE 25 MG [Concomitant]
     Active Substance: CHLORTHALIDONE
     Dates: start: 20181120
  4. THEOPHYLLINE ER 320 MG [Concomitant]
     Dates: start: 20110630
  5. VERAPAMIL ER 120 MG [Concomitant]
     Dates: start: 20181120
  6. ALLOPURINOL. [Concomitant]
     Active Substance: ALLOPURINOL
     Dates: start: 20110630

REACTIONS (2)
  - Product substitution issue [None]
  - Blood pressure increased [None]

NARRATIVE: CASE EVENT DATE: 20190920
